FAERS Safety Report 20169761 (Version 1)
Quarter: 2021Q4

REPORT INFORMATION
  Report Type: Spontaneous
  Country: US (occurrence: US)
  Receive Date: 20211210
  Receipt Date: 20211210
  Transmission Date: 20220303
  Serious: No
  Sender: FDA-Public Use
  Company Number: US-BRISTOL-MYERS SQUIBB COMPANY-BMS-2020-113790

PATIENT
  Age: 69 Year
  Sex: Male
  Weight: 69.3 kg

DRUGS (6)
  1. OPDIVO [Suspect]
     Active Substance: NIVOLUMAB
     Indication: Product used for unknown indication
     Dosage: UNK
     Route: 065
  2. CABOMETYX [Suspect]
     Active Substance: CABOZANTINIB S-MALATE
     Indication: Renal cancer
     Dosage: 60 MG, QD
     Route: 048
     Dates: start: 20201008, end: 20201104
  3. CABOMETYX [Suspect]
     Active Substance: CABOZANTINIB S-MALATE
     Dosage: 60 MG, QOD
     Route: 048
     Dates: start: 20201117
  4. CABOMETYX [Suspect]
     Active Substance: CABOZANTINIB S-MALATE
     Dosage: 40 MG, QD
     Route: 048
     Dates: end: 20210614
  5. INLYTA [Suspect]
     Active Substance: AXITINIB
     Indication: Renal cancer
     Dosage: 5 MG, BID
     Route: 065
  6. METOPROLOL [Concomitant]
     Active Substance: METOPROLOL
     Indication: Product used for unknown indication
     Dosage: UNK
     Route: 065

REACTIONS (16)
  - Blister [Not Recovered/Not Resolved]
  - Nasal dryness [Unknown]
  - Blood thyroid stimulating hormone abnormal [Unknown]
  - Pruritus [Unknown]
  - Nasopharyngitis [Not Recovered/Not Resolved]
  - Limb discomfort [Unknown]
  - Sensitive skin [Not Recovered/Not Resolved]
  - Glossodynia [Unknown]
  - Skin ulcer [Unknown]
  - Red blood cell count decreased [Not Recovered/Not Resolved]
  - Blood pressure increased [Unknown]
  - Stomatitis [Unknown]
  - Pain in extremity [Recovering/Resolving]
  - Palmar-plantar erythrodysaesthesia syndrome [Unknown]
  - Blood potassium decreased [Unknown]
  - Dysphonia [Unknown]

NARRATIVE: CASE EVENT DATE: 20201001
